FAERS Safety Report 7015661-0 (Version None)
Quarter: 2010Q3

REPORT INFORMATION
  Report Type: 
  Country: None (occurrence: None)
  Receive Date: 20100927
  Receipt Date: 20100916
  Transmission Date: 20110219
  Serious: Yes (Hospitalization)
  Sender: FDA-Public Use
  Company Number: US-JNJFOC-20100905660

PATIENT
  Sex: Male

DRUGS (3)
  1. INVEGA SUSTENNA [Suspect]
     Indication: SCHIZOPHRENIA
     Route: 030
  2. HALDOL [Concomitant]
     Indication: SCHIZOPHRENIA
  3. GEODON [Concomitant]
     Indication: SCHIZOPHRENIA

REACTIONS (3)
  - DYSARTHRIA [None]
  - FEELING HOT [None]
  - HEART RATE INCREASED [None]
